FAERS Safety Report 7444802-6 (Version None)
Quarter: 2011Q2

REPORT INFORMATION
  Report Type: 
  Country: None (occurrence: None)
  Receive Date: 20110426
  Receipt Date: 20110426
  Transmission Date: 20111010
  Serious: Yes (Death, Life-Threatening, Hospitalization, Disabling, Congenital Anomaly, Other)
  Sender: FDA-Public Use
  Company Number: None

PATIENT
  Sex: Male
  Weight: 99.7913 kg

DRUGS (2)
  1. CYMBALTA [Suspect]
     Indication: BACK PAIN
     Dosage: .5 ONCE A DAY PO
     Route: 048
     Dates: start: 20060701, end: 20061215
  2. CYMBALTA [Suspect]
     Indication: DEPRESSION
     Dosage: .5 ONCE A DAY PO
     Route: 048
     Dates: start: 20060701, end: 20061215

REACTIONS (3)
  - CONFUSIONAL STATE [None]
  - CEREBROVASCULAR ACCIDENT [None]
  - COMA [None]
